FAERS Safety Report 24344662 (Version 5)
Quarter: 2024Q4

REPORT INFORMATION
  Report Type: Report from Study
  Country: US (occurrence: US)
  Receive Date: 20240920
  Receipt Date: 20241125
  Transmission Date: 20250115
  Serious: Yes (Other)
  Sender: SUNOVION
  Company Number: US-SUMITOMO PHARMA SWITZERLAND GMBH-2024SPA001928

PATIENT

DRUGS (2)
  1. ORGOVYX [Suspect]
     Active Substance: RELUGOLIX
     Indication: Prostate cancer
     Dosage: 360 MG
     Route: 048
     Dates: start: 20240820, end: 20240820
  2. ORGOVYX [Suspect]
     Active Substance: RELUGOLIX
     Dosage: 120 MG, QD
     Route: 048
     Dates: start: 20240821

REACTIONS (21)
  - Inguinal hernia [Unknown]
  - Eructation [Unknown]
  - Discomfort [Unknown]
  - Dyspepsia [Unknown]
  - Flatulence [Unknown]
  - Blood testosterone decreased [Unknown]
  - Feeling abnormal [Unknown]
  - Abdominal distension [Unknown]
  - Decreased appetite [Unknown]
  - Glycosylated haemoglobin increased [Unknown]
  - Weight decreased [Unknown]
  - Abdominal pain [Unknown]
  - Nerve compression [Unknown]
  - Neuralgia [Unknown]
  - Blood triglycerides increased [Unknown]
  - Nausea [Unknown]
  - Constipation [Recovered/Resolved]
  - Fatigue [Unknown]
  - Insomnia [Unknown]
  - Hot flush [Unknown]
  - Diarrhoea [Unknown]
